FAERS Safety Report 20318179 (Version 2)
Quarter: 2022Q1

REPORT INFORMATION
  Report Type: Spontaneous
  Country: CZ (occurrence: CZ)
  Receive Date: 20220110
  Receipt Date: 20220304
  Transmission Date: 20220423
  Serious: Yes (Hospitalization)
  Sender: FDA-Public Use
  Company Number: CZ-TEVA-2021-CZ-1993199

PATIENT
  Age: 57 Year
  Sex: Male
  Weight: 104.6 kg

DRUGS (14)
  1. METFORMIN [Suspect]
     Active Substance: METFORMIN HYDROCHLORIDE
     Indication: Type 2 diabetes mellitus
     Dosage: 3000 MILLIGRAM, QD
     Route: 048
     Dates: start: 2011
  2. METFORMIN [Suspect]
     Active Substance: METFORMIN HYDROCHLORIDE
     Dosage: MAINTAINING THE ESTABLISHED DOSE OF METFORMIN
     Route: 048
     Dates: start: 2019
  3. METFORMIN [Suspect]
     Active Substance: METFORMIN HYDROCHLORIDE
     Dosage: 3000 MILLIGRAM, QD
     Route: 048
     Dates: start: 2019
  4. METFORMIN [Suspect]
     Active Substance: METFORMIN HYDROCHLORIDE
     Dosage: AT GRADUALLY INCREASING DOSES
     Route: 048
  5. METFORMIN [Suspect]
     Active Substance: METFORMIN HYDROCHLORIDE
     Dosage: 1000 MILLIGRAM, TID (~METFORMIN 1000 MG, 1-1-1 )
     Route: 048
  6. GLIMEPIRIDE [Suspect]
     Active Substance: GLIMEPIRIDE
     Indication: Type 2 diabetes mellitus
     Dosage: UNK
     Route: 048
     Dates: start: 2011
  7. GLIMEPIRIDE [Suspect]
     Active Substance: GLIMEPIRIDE
     Dosage: UNK
     Route: 048
  8. GLIMEPIRIDE [Suspect]
     Active Substance: GLIMEPIRIDE
     Dosage: UNK (AT GRADUALLY INCREASING DOSES)
     Route: 048
  9. LANTUS [Concomitant]
     Active Substance: INSULIN GLARGINE
     Indication: Type 2 diabetes mellitus
     Dosage: 18 UNITS AT 21 HOURS
  10. LANTUS [Concomitant]
     Active Substance: INSULIN GLARGINE
     Dosage: 18 UNITS AT 21 HOURS
     Dates: start: 2019
  11. LANTUS [Concomitant]
     Active Substance: INSULIN GLARGINE
     Dosage: 20 UNITS AT 21 HOURS
     Route: 058
     Dates: start: 2019
  12. APIDRA SOLOSTAR [Concomitant]
     Active Substance: INSULIN GLULISINE
     Indication: Type 2 diabetes mellitus
     Dosage: UNK, TID (UNK, TID (12-12-10 UNITS))
  13. APIDRA SOLOSTAR [Concomitant]
     Active Substance: INSULIN GLULISINE
     Dosage: UNK (8-8-6 UNITS)
     Route: 058
     Dates: start: 2019
  14. APIDRA SOLOSTAR [Concomitant]
     Active Substance: INSULIN GLULISINE
     Dosage: UNK (12-12-10 UNITS)
     Dates: start: 2019

REACTIONS (4)
  - Urinary tract infection [Unknown]
  - Treatment failure [Unknown]
  - Diabetes mellitus inadequate control [Recovering/Resolving]
  - Drug ineffective [Unknown]

NARRATIVE: CASE EVENT DATE: 20190101
